FAERS Safety Report 25456705 (Version 1)
Quarter: 2025Q2

REPORT INFORMATION
  Report Type: Spontaneous
  Country: ES (occurrence: ES)
  Receive Date: 20250619
  Receipt Date: 20250619
  Transmission Date: 20250717
  Serious: Yes (Other)
  Sender: TEVA
  Company Number: None

PATIENT
  Age: 94 Year
  Sex: Female
  Weight: 67.5 kg

DRUGS (1)
  1. LEVOFLOXACIN [Suspect]
     Active Substance: LEVOFLOXACIN
     Indication: Bronchitis
     Dosage: 7 TABLETS
     Route: 048
     Dates: start: 20250420, end: 20250422

REACTIONS (1)
  - Tendon injury [Unknown]

NARRATIVE: CASE EVENT DATE: 20250421
